FAERS Safety Report 7825507-6 (Version None)
Quarter: 2011Q4

REPORT INFORMATION
  Report Type: 
  Country: None (occurrence: None)
  Receive Date: 20111019
  Receipt Date: 20111004
  Transmission Date: 20120403
  Serious: Yes (Death, Hospitalization, Other)
  Sender: FDA-Public Use
  Company Number: JP-GLAXOSMITHKLINE-B0737803A

PATIENT

DRUGS (15)
  1. HEPSERA [Suspect]
     Indication: PRODUCT USED FOR UNKNOWN INDICATION
     Dosage: 10MG PER DAY
     Route: 048
     Dates: start: 20051027, end: 20100929
  2. METHYCOBAL [Concomitant]
     Dosage: 1000MCG PER DAY
     Route: 048
  3. DEPAS [Concomitant]
     Dosage: 1MG PER DAY
     Route: 048
  4. AMINOLEBAN EN [Concomitant]
     Dosage: 50G PER DAY
     Route: 048
  5. ACTONEL [Concomitant]
     Route: 048
     Dates: start: 20100714
  6. PROMAC [Concomitant]
     Dosage: 150MG PER DAY
     Route: 048
  7. LACTITOL [Concomitant]
     Dosage: 18G PER DAY
     Route: 048
  8. FUROSEMIDE [Concomitant]
     Dosage: 20MG PER DAY
     Route: 048
  9. LIVACT [Concomitant]
     Dosage: 8.3G PER DAY
     Route: 048
  10. LAMIVUDINE [Concomitant]
     Dosage: 100MG PER DAY
     Route: 048
     Dates: start: 20041104
  11. RABEPRAZOLE SODIUM [Concomitant]
     Dosage: 10MG PER DAY
     Route: 048
  12. NEUROTROPIN [Concomitant]
     Dosage: 16IU PER DAY
     Route: 048
  13. HEPSERA [Suspect]
     Dosage: 10MG ALTERNATE DAYS
     Route: 048
     Dates: start: 20100930, end: 20110709
  14. ALDACTONE [Concomitant]
     Dosage: 25MG PER DAY
     Route: 048
  15. MAGNESIUM OXIDE [Concomitant]
     Dosage: .5G PER DAY
     Route: 048

REACTIONS (5)
  - FANCONI SYNDROME ACQUIRED [None]
  - OSTEOMALACIA [None]
  - RENAL IMPAIRMENT [None]
  - MULTIPLE FRACTURES [None]
  - ELECTROLYTE IMBALANCE [None]
